FAERS Safety Report 10419360 (Version 1)
Quarter: 2014Q3

REPORT INFORMATION
  Report Type: Spontaneous
  Country: CZ (occurrence: None)
  Receive Date: 20140827
  Receipt Date: 20140827
  Transmission Date: 20150326
  Serious: Yes (Hospitalization, Other)
  Sender: FDA-Public Use
  Company Number: ALB-003-14-CZ

PATIENT
  Age: 38 Year
  Sex: Female

DRUGS (1)
  1. ALBUNORM [Suspect]
     Active Substance: ALBUMIN (HUMAN)
     Indication: PRODUCT USED FOR UNKNOWN INDICATION
     Dosage: UNK, INTRAVENOUS (NOT OTHERWISE SPECIFIED)?
     Route: 042
     Dates: start: 20140220, end: 20140220

REACTIONS (3)
  - Chills [None]
  - Rash generalised [None]
  - Pyrexia [None]

NARRATIVE: CASE EVENT DATE: 20140220
